FAERS Safety Report 9556796 (Version 1)
Quarter: 2013Q3

REPORT INFORMATION
  Report Type: Spontaneous
  Country: US (occurrence: None)
  Receive Date: 20130726
  Receipt Date: 20130726
  Transmission Date: 20140515
  Serious: Yes (Hospitalization)
  Sender: FDA-Public Use
  Company Number: UTC-018157

PATIENT
  Age: 52 Year
  Sex: Female
  Weight: 68.18 kg

DRUGS (3)
  1. REMODULIN ( 10 MILLIGRAM/MILLILITERS, INJECTION FOR INFUSION) (TREPROSTINIL SODIUM) [Suspect]
     Dosage: 43-47 NG/KG/MIN (1 IN 1 MIN), SUBCUTANEOUS
     Route: 058
     Dates: start: 20111002
  2. COUMADIN (WARFARIN SODIUM) [Concomitant]
  3. DIURETICS (DIURETICS) [Concomitant]

REACTIONS (1)
  - Infusion site cellulitis [None]
